FAERS Safety Report 7805047-0 (Version None)
Quarter: 2011Q4

REPORT INFORMATION
  Report Type: 
  Country: None (occurrence: None)
  Receive Date: 20111010
  Receipt Date: 20090406
  Transmission Date: 20120403
  Serious: Yes (Hospitalization)
  Sender: FDA-Public Use
  Company Number: CH-GLAXOSMITHKLINE-B0570252A

PATIENT
  Sex: Female
  Weight: 63 kg

DRUGS (7)
  1. OMEPRAZOLE [Concomitant]
     Indication: GASTRITIS
     Route: 048
     Dates: start: 20070927
  2. FOLIC ACID [Concomitant]
     Indication: ANAEMIA
     Dosage: 5MG PER DAY
     Route: 048
     Dates: start: 20071007
  3. EPIRUBICIN [Suspect]
     Indication: NEOPLASM
     Dosage: 75MGM2 PER DAY
     Route: 065
     Dates: start: 20090401, end: 20090406
  4. PAZOPANIB [Suspect]
     Indication: NEOPLASM
     Dosage: 800MG PER DAY
     Route: 048
     Dates: start: 20090330, end: 20090406
  5. ACETAMINOPHEN [Concomitant]
     Indication: PAIN
     Dosage: 1G PER DAY
     Route: 048
     Dates: start: 20071017
  6. LAXOBERON [Concomitant]
     Indication: CONSTIPATION
     Dosage: 15DROP PER DAY
     Route: 048
     Dates: start: 20070927
  7. EMEND [Concomitant]
     Indication: NAUSEA
     Route: 048
     Dates: start: 20090401, end: 20090403

REACTIONS (3)
  - NAUSEA [None]
  - DEHYDRATION [None]
  - VOMITING [None]
